FAERS Safety Report 14237526 (Version 4)
Quarter: 2018Q1

REPORT INFORMATION
  Report Type: Report from Study
  Country: None (occurrence: HK)
  Receive Date: 20171129
  Receipt Date: 20180312
  Transmission Date: 20180508
  Serious: Yes (Hospitalization)
  Sender: FDA-Public Use
  Company Number: HK-ABBVIE-17P-075-2172278-00

PATIENT
  Age: 70 Year
  Sex: Male
  Weight: 77.8 kg

DRUGS (18)
  1. IRON SULPHATE [Concomitant]
     Active Substance: FERROUS SULFATE ANHYDROUS
     Indication: IRON DEFICIENCY ANAEMIA
     Route: 048
     Dates: start: 20170601
  2. SODIUM BICARBONATE. [Concomitant]
     Active Substance: SODIUM BICARBONATE
     Indication: ACIDOSIS
     Route: 048
     Dates: start: 20150919
  3. CYCLOSPORIN A [Concomitant]
     Active Substance: CYCLOSPORINE
     Route: 048
     Dates: start: 20171119
  4. CYCLOSPORIN A [Concomitant]
     Active Substance: CYCLOSPORINE
     Route: 048
     Dates: start: 20170323, end: 20170419
  5. CYCLOSPORIN A [Concomitant]
     Active Substance: CYCLOSPORINE
     Route: 048
     Dates: start: 20170928, end: 20171118
  6. RENVELA [Concomitant]
     Active Substance: SEVELAMER CARBONATE
     Indication: HYPERPHOSPHATAEMIA
     Route: 048
     Dates: start: 20170928
  7. CYCLOSPORIN A [Concomitant]
     Active Substance: CYCLOSPORINE
     Dosage: AFTERNOON
     Route: 048
     Dates: start: 20170420, end: 20170531
  8. DILTIAZEM SR [Concomitant]
     Active Substance: DILTIAZEM HYDROCHLORIDE
     Indication: HYPERTENSION
     Route: 048
     Dates: start: 20150919
  9. HYDRALAZINE [Concomitant]
     Active Substance: HYDRALAZINE HYDROCHLORIDE
     Indication: HYPERTENSION
     Route: 048
     Dates: start: 20171019
  10. SODIUM BICARBONATE. [Concomitant]
     Active Substance: SODIUM BICARBONATE
     Indication: CHRONIC KIDNEY DISEASE
  11. CYCLOSPORIN A [Concomitant]
     Active Substance: CYCLOSPORINE
     Dosage: MORNING
     Route: 048
     Dates: start: 20170420, end: 20170531
  12. GLECAPREVIR/PIBRENTASVIR [Suspect]
     Active Substance: GLECAPREVIR\PIBRENTASVIR
     Route: 048
  13. CYCLOSPORIN A [Concomitant]
     Active Substance: CYCLOSPORINE
     Route: 048
     Dates: start: 20170601, end: 20170927
  14. DOXAZOSIN MESYLATE GITS [Concomitant]
     Indication: HYPERTENSION
     Route: 048
     Dates: start: 20171019
  15. GLECAPREVIR/PIBRENTASVIR [Suspect]
     Active Substance: GLECAPREVIR\PIBRENTASVIR
     Indication: HEPATIC CIRRHOSIS
     Route: 048
     Dates: start: 20171111, end: 20171118
  16. CYCLOSPORIN A [Concomitant]
     Active Substance: CYCLOSPORINE
     Indication: SYSTEMIC LUPUS ERYTHEMATOSUS
     Route: 048
     Dates: start: 20140821, end: 20170322
  17. FRUSEMIDE [Concomitant]
     Active Substance: FUROSEMIDE
     Indication: CHRONIC KIDNEY DISEASE
     Route: 048
     Dates: start: 20140821
  18. CALCIUM CARBONATE. [Concomitant]
     Active Substance: CALCIUM CARBONATE
     Indication: HYPOCALCAEMIA
     Route: 048
     Dates: start: 20150919

REACTIONS (1)
  - Renal impairment [Recovered/Resolved]

NARRATIVE: CASE EVENT DATE: 20171117
